FAERS Safety Report 14181924 (Version 1)
Quarter: 2017Q4

REPORT INFORMATION
  Report Type: Report from Study
  Country: US (occurrence: US)
  Receive Date: 20171113
  Receipt Date: 20171113
  Transmission Date: 20180321
  Serious: Yes (Other)
  Sender: FDA-Public Use
  Company Number: US-ROCHE-1991673

PATIENT
  Age: 88 Year
  Sex: Male
  Weight: 85.81 kg

DRUGS (29)
  1. WARFARIN [Concomitant]
     Active Substance: WARFARIN
     Indication: ANTICOAGULANT THERAPY
     Dosage: ONGOING: NO
     Route: 048
     Dates: end: 2017
  2. LUTEIN [Concomitant]
     Active Substance: LUTEIN
     Dosage: BEEN TAKING FOR THE LAST 4-5 YEARS, LUTEIN 25 MG, ZEAXANTHIN 5 MG
     Route: 048
  3. ATORVASTATIN [Concomitant]
     Active Substance: ATORVASTATIN
     Indication: BLOOD CHOLESTEROL
     Dosage: STARTED ABOUT 4 YEARS AGO
     Route: 048
  4. MUCINEX [Concomitant]
     Active Substance: GUAIFENESIN
     Indication: SINUSITIS
     Dosage: OPTIONAL
     Route: 048
  5. OMEPRAZOLE. [Concomitant]
     Active Substance: OMEPRAZOLE
     Indication: DYSPEPSIA
     Dosage: BEEN ON 15-20 YEARS
     Route: 048
  6. ESBRIET [Suspect]
     Active Substance: PIRFENIDONE
     Dosage: 801 MG THREE TIMES DAILY
     Route: 048
     Dates: start: 20170728, end: 20170904
  7. CITRUCEL [Concomitant]
     Active Substance: METHYLCELLULOSE (4000 MPA.S)
     Dosage: 2 IN MORNING FOR AT LEAST 1-2 YEARS
     Route: 048
  8. OXYGEN. [Concomitant]
     Active Substance: OXYGEN
     Route: 065
  9. ULTRAM [Concomitant]
     Active Substance: TRAMADOL HYDROCHLORIDE
     Route: 065
  10. LEVOTHYROXIN [Concomitant]
     Active Substance: LEVOTHYROXINE
     Dosage: BEEN TAKING FOR 3-5 YEARS
     Route: 048
  11. NIACIN. [Concomitant]
     Active Substance: NIACIN
     Route: 065
  12. TRAMADOL. [Concomitant]
     Active Substance: TRAMADOL
     Indication: PAIN
     Dosage: ONE EVERY NIGHT FOR LAST 4-5 YEARS
     Route: 048
  13. OMEPRAZOLE. [Concomitant]
     Active Substance: OMEPRAZOLE
     Indication: DYSPEPSIA
  14. ESBRIET [Suspect]
     Active Substance: PIRFENIDONE
     Indication: IDIOPATHIC PULMONARY FIBROSIS
     Dosage: ONE THIRD OF 801 MG THREE TIMES DAILY
     Route: 048
     Dates: start: 20170707, end: 20170713
  15. FLONASE [Concomitant]
     Active Substance: FLUTICASONE PROPIONATE
     Dosage: STARTED 1 1/2 YEARS AGO ;ONGOING: YES
     Route: 045
  16. ESBRIET [Suspect]
     Active Substance: PIRFENIDONE
     Dosage: TWO THIRDS OF 801 MG THREE TIMES DAILY
     Route: 048
     Dates: start: 201708, end: 20170904
  17. BAYER ASPIRIN [Concomitant]
     Active Substance: ASPIRIN
     Dosage: BEEN TAKINF ROR 8-10 YEARS
     Route: 048
  18. ESBRIET [Suspect]
     Active Substance: PIRFENIDONE
     Dosage: 801 MG THREE TIMES DAILY
     Route: 048
     Dates: start: 20170721, end: 20170727
  19. WARFARIN [Concomitant]
     Active Substance: WARFARIN
     Route: 048
     Dates: start: 2017
  20. CARVEDILOL. [Concomitant]
     Active Substance: CARVEDILOL
     Indication: CARDIAC FAILURE
     Dosage: TOOK FOR 22-24 YEARS, STOPPED BY DOCTOR
     Route: 048
     Dates: end: 20170814
  21. NIACIN. [Concomitant]
     Active Substance: NIACIN
     Indication: ANTICOAGULANT THERAPY
     Dosage: TAKES 2 ONCE A DAY SINCE HEART SURGERY
     Route: 048
  22. FENOFIBRATE. [Concomitant]
     Active Substance: FENOFIBRATE
     Indication: BLOOD TRIGLYCERIDES
     Dosage: BEEN ON FOR A WHILE, 20-30 YEARS
     Route: 048
  23. SPIRIVA [Concomitant]
     Active Substance: TIOTROPIUM BROMIDE MONOHYDRATE
     Dosage: USING LESS AND LESS
     Route: 055
  24. IPRATROPIUM BROMIDE. [Concomitant]
     Active Substance: IPRATROPIUM BROMIDE
     Dosage: TWO SPRAYS EACH NOSTRIL ONCE DAILY FOR 2 YEARS
     Route: 045
  25. IPRATROPIUM BROMIDE. [Concomitant]
     Active Substance: IPRATROPIUM BROMIDE
     Dosage: IPRATROPIUM BROMIDE 0.5 MG, ALBUTEROL SULFATE 3 MG
     Route: 065
  26. ESBRIET [Suspect]
     Active Substance: PIRFENIDONE
     Dosage: TWO THIRDS OF 801 MG THREE TIMES DAILY
     Route: 048
     Dates: start: 20170714, end: 20170720
  27. CARVEDILOL. [Concomitant]
     Active Substance: CARVEDILOL
     Route: 048
     Dates: end: 20170905
  28. NETI POT [Concomitant]
     Route: 045
  29. OXYGEN. [Concomitant]
     Active Substance: OXYGEN
     Indication: IDIOPATHIC PULMONARY FIBROSIS
     Dosage: SAID USES 24/7/365
     Route: 055

REACTIONS (24)
  - Respiratory failure [Unknown]
  - Atrial fibrillation [Not Recovered/Not Resolved]
  - Agitation [Not Recovered/Not Resolved]
  - Heart rate increased [Recovered/Resolved with Sequelae]
  - Laziness [Not Recovered/Not Resolved]
  - Nasal disorder [Recovered/Resolved with Sequelae]
  - International normalised ratio decreased [Recovering/Resolving]
  - Prothrombin time shortened [Unknown]
  - Blood disorder [Not Recovered/Not Resolved]
  - Dehydration [Recovered/Resolved]
  - Muscle spasms [Recovered/Resolved with Sequelae]
  - Ill-defined disorder [Not Recovered/Not Resolved]
  - Asthenia [Recovered/Resolved]
  - General physical health deterioration [Unknown]
  - Haematological malignancy [Unknown]
  - Blood test abnormal [Not Recovered/Not Resolved]
  - Fatigue [Not Recovered/Not Resolved]
  - Cardiac failure [Unknown]
  - Decreased appetite [Not Recovered/Not Resolved]
  - Dyspnoea [Not Recovered/Not Resolved]
  - Tremor [Recovered/Resolved]
  - Insomnia [Recovered/Resolved with Sequelae]
  - Peripheral swelling [Recovering/Resolving]
  - Platelet count decreased [Unknown]

NARRATIVE: CASE EVENT DATE: 20170831
